FAERS Safety Report 17729986 (Version 1)
Quarter: 2020Q2

REPORT INFORMATION
  Report Type: Report from Study
  Country: GB (occurrence: GB)
  Receive Date: 20200430
  Receipt Date: 20200430
  Transmission Date: 20200714
  Serious: Yes (Hospitalization, Other)
  Sender: FDA-Public Use
  Company Number: GB-SAMSUNG BIOEPIS-SB-2020-03905

PATIENT
  Age: 82 Year
  Sex: Female

DRUGS (1)
  1. BENEPALI [Suspect]
     Active Substance: ETANERCEPT
     Indication: RHEUMATOID ARTHRITIS
     Route: 058
     Dates: start: 20170608

REACTIONS (7)
  - Hypertension [Recovering/Resolving]
  - Immunosuppression [Unknown]
  - Macular degeneration [Recovering/Resolving]
  - Dyspnoea [Recovering/Resolving]
  - Addison^s disease [Recovering/Resolving]
  - Contraindicated product administered [Unknown]
  - Cataract [Recovering/Resolving]

NARRATIVE: CASE EVENT DATE: 202001
